FAERS Safety Report 5106837-8 (Version None)
Quarter: 2006Q3

REPORT INFORMATION
  Report Type: 
  Country: None (occurrence: None)
  Receive Date: 20060912
  Receipt Date: 20060821
  Transmission Date: 20061208
  Serious: No
  Sender: FDA-Public Use
  Company Number: 36243

PATIENT
  Age: 58 Year
  Sex: Male

DRUGS (6)
  1. MAXIDEX [Suspect]
  2. AMITRIPTYLINE HYDROCHLORIDE [Suspect]
  3. OMEPRAZOLE [Suspect]
  4. RITUXIMAB [Suspect]
     Dates: start: 20060619, end: 20060619
  5. VFEND [Suspect]
     Dosage: 600 MG QD
  6. ZOPICLONE [Suspect]

REACTIONS (3)
  - AGITATION [None]
  - AMNESIA [None]
  - CONFUSIONAL STATE [None]
